FAERS Safety Report 10361883 (Version 1)
Quarter: 2014Q3

REPORT INFORMATION
  Report Type: Spontaneous
  Country: JP (occurrence: JP)
  Receive Date: 20140805
  Receipt Date: 20140805
  Transmission Date: 20150326
  Serious: Yes (Death, Other)
  Sender: FDA-Public Use
  Company Number: PHHY2012JP133700

PATIENT
  Age: 75 Year
  Sex: Female

DRUGS (3)
  1. SPRYCEL [Suspect]
     Active Substance: DASATINIB
     Dosage: 140 MG
  2. GLIVEC [Suspect]
     Active Substance: IMATINIB MESYLATE
     Indication: ACUTE LYMPHOCYTIC LEUKAEMIA
     Dosage: 600 MG, DAILY
  3. GLIVEC [Suspect]
     Active Substance: IMATINIB MESYLATE
     Dosage: 400 MG

REACTIONS (6)
  - Haematotoxicity [Unknown]
  - Rash [Unknown]
  - Acute lymphocytic leukaemia [Unknown]
  - Eosinophil count increased [Unknown]
  - Death [Fatal]
  - Acute lymphocytic leukaemia recurrent [Unknown]
